FAERS Safety Report 10733316 (Version 1)
Quarter: 2015Q1

REPORT INFORMATION
  Report Type: Spontaneous
  Country: KR (occurrence: None)
  Receive Date: 20150120
  Receipt Date: 20150120
  Transmission Date: 20150721
  Serious: Yes (Other)
  Sender: FDA-Public Use
  Company Number: FK201500174

PATIENT
  Age: 32 Year
  Sex: Male

DRUGS (4)
  1. ACYCLOVIR SODIUM (MANUFACTURER UNKNOWN) (ACYCLOVIR SODIUM) (ACYCLOVIR SODIUM) [Suspect]
     Active Substance: ACYCLOVIR SODIUM
     Indication: NECROTISING RETINITIS
     Route: 042
  2. VIGAMOX (MOXIFLOXACIN HYDROCHLORIDE) [Concomitant]
  3. BALANCED SALT SOLUTION (EYE STREAM /06360701/) [Concomitant]
  4. VANCOMYCIN [Concomitant]
     Active Substance: VANCOMYCIN

REACTIONS (1)
  - Acute kidney injury [None]
